FAERS Safety Report 7150825-7 (Version None)
Quarter: 2010Q4

REPORT INFORMATION
  Report Type: 
  Country: None (occurrence: None)
  Receive Date: 20101210
  Receipt Date: 20101206
  Transmission Date: 20110411
  Serious: Yes (Hospitalization)
  Sender: FDA-Public Use
  Company Number: US-AMGEN-USASP2010005891

PATIENT

DRUGS (3)
  1. NPLATE [Suspect]
     Indication: IDIOPATHIC THROMBOCYTOPENIC PURPURA
     Dosage: UNK
     Dates: start: 20090528, end: 20100910
  2. PREDNISONE [Concomitant]
     Dosage: UNK
     Dates: start: 20100528
  3. COUMADIN [Concomitant]
     Dosage: UNK
     Dates: start: 20100822

REACTIONS (4)
  - COAGULOPATHY [None]
  - GASTROOESOPHAGEAL REFLUX DISEASE [None]
  - PULMONARY EMBOLISM [None]
  - THROMBOSIS [None]
